FAERS Safety Report 5186831-1 (Version None)
Quarter: 2006Q4

REPORT INFORMATION
  Report Type: 
  Country: None (occurrence: None)
  Receive Date: 20061213
  Receipt Date: 20061206
  Transmission Date: 20070319
  Serious: Yes (Other)
  Sender: FDA-Public Use
  Company Number: 163-21880-06080747

PATIENT
  Age: 78 Year
  Sex: Male
  Weight: 80.7 kg

DRUGS (3)
  1. REVLIMID [Suspect]
     Indication: MULTIPLE MYELOMA
     Dosage: SEE IMAGE
     Route: 048
     Dates: start: 20060221, end: 20060313
  2. REVLIMID [Suspect]
     Indication: MULTIPLE MYELOMA
     Dosage: SEE IMAGE
     Route: 048
     Dates: start: 20060414
  3. DEXAMETHASONE TAB [Suspect]
     Indication: MULTIPLE MYELOMA
     Dosage: 40 MG, DAYS 1, 8, 15, + 22 Q28D, ORAL
     Route: 048
     Dates: start: 20060221, end: 20060314

REACTIONS (5)
  - ALANINE AMINOTRANSFERASE INCREASED [None]
  - ASPARTATE AMINOTRANSFERASE INCREASED [None]
  - BLOOD ALKALINE PHOSPHATASE INCREASED [None]
  - DRUG TOXICITY [None]
  - HYPERBILIRUBINAEMIA [None]
